FAERS Safety Report 9262570 (Version 1)
Quarter: 2013Q2

REPORT INFORMATION
  Report Type: Spontaneous
  Country: US (occurrence: US)
  Receive Date: 20130430
  Receipt Date: 20130430
  Transmission Date: 20140414
  Serious: Yes (Hospitalization)
  Sender: FDA-Public Use
  Company Number: US-BAYER-2013-052081

PATIENT
  Age: 30 Year
  Sex: Female

DRUGS (6)
  1. YAZ [Suspect]
  2. GIANVI [Suspect]
  3. VITAMIN D [Concomitant]
     Dosage: 5000 IU, PER DAY
  4. FISH OIL [Concomitant]
     Dosage: 1000 MG, A DAY
  5. PRILOSEC [Concomitant]
     Dosage: 20 MG, A DAY
  6. B-COMPLEX [VITAMIN B NOS] [Concomitant]
     Dosage: ONCE A DAY

REACTIONS (1)
  - Pulmonary embolism [None]
